FAERS Safety Report 9661135 (Version 1)
Quarter: 2013Q4

REPORT INFORMATION
  Report Type: Spontaneous
  Country: JP (occurrence: None)
  Receive Date: 20131030
  Receipt Date: 20131030
  Transmission Date: 20140711
  Serious: Yes (Hospitalization, Other)
  Sender: FDA-Public Use
  Company Number: ADR-2013-01953

PATIENT
  Age: 30 Year
  Sex: Male
  Weight: 60 kg

DRUGS (2)
  1. GABALON [Suspect]
  2. BOTOX (100) [Concomitant]

REACTIONS (5)
  - Drug tolerance [None]
  - Muscle spasticity [None]
  - Drug ineffective [None]
  - Drug withdrawal syndrome [None]
  - Activities of daily living impaired [None]
